FAERS Safety Report 4682811-0 (Version None)
Quarter: 2005Q2

REPORT INFORMATION
  Report Type: 
  Country: None (occurrence: None)
  Receive Date: 20050606
  Receipt Date: 20050522
  Transmission Date: 20051028
  Serious: Yes (Other)
  Sender: FDA-Public Use
  Company Number: 2005AC00804

PATIENT
  Age: 59 Year
  Sex: Female

DRUGS (9)
  1. QUETIAPINE [Suspect]
     Route: 048
     Dates: start: 20040121
  2. QUETIAPINE [Suspect]
     Route: 048
     Dates: start: 20040221
  3. QUETIAPINE [Suspect]
     Route: 048
     Dates: start: 20040305, end: 20040602
  4. LITHIUM [Concomitant]
     Dates: start: 19900101
  5. VALPROIC ACID [Concomitant]
     Dates: start: 20010101
  6. OMEPRAZOLE [Concomitant]
  7. LORMATAZEPAM [Concomitant]
     Dates: start: 19930101
  8. BEZAFIBRATE [Concomitant]
     Dates: start: 19950101
  9. TYROSINE [Concomitant]
     Dates: start: 19970101

REACTIONS (2)
  - LEUKOPENIA [None]
  - NEUTROPENIA [None]
